FAERS Safety Report 16698823 (Version 1)
Quarter: 2019Q3

REPORT INFORMATION
  Report Type: Report from Study
  Country: CA (occurrence: CA)
  Receive Date: 20190813
  Receipt Date: 20190813
  Transmission Date: 20191004
  Serious: Yes (Other)
  Sender: FDA-Public Use
  Company Number: CA-TEVA-2019-CA-1090569

PATIENT
  Sex: Female

DRUGS (2)
  1. DACTINOMYCIN [Suspect]
     Active Substance: DACTINOMYCIN
     Indication: GESTATIONAL TROPHOBLASTIC TUMOUR
     Dosage: .5 MILLIGRAM DAILY; FOR 5 DAYS (DAY 1-5) DURING SECOND CYCLE
     Route: 042
  2. METHOTREXATE. [Suspect]
     Active Substance: METHOTREXATE
     Indication: GESTATIONAL TROPHOBLASTIC TUMOUR
     Dosage: 30 MILLIGRAM DAILY; FOR 5 DAYS (DAY 1-5) DURING FIRST CYCLE
     Route: 042

REACTIONS (1)
  - Haematotoxicity [Unknown]
